FAERS Safety Report 17858035 (Version 4)
Quarter: 2020Q3

REPORT INFORMATION
  Report Type: Spontaneous
  Country: US (occurrence: US)
  Receive Date: 20200604
  Receipt Date: 20200814
  Transmission Date: 20201103
  Serious: Yes (Hospitalization, Other)
  Sender: FDA-Public Use
  Company Number: US-PIRAMAL ENTERPRISES LIMITED-2020-PEL-000247

PATIENT

DRUGS (7)
  1. BACLOFEN. [Concomitant]
     Active Substance: BACLOFEN
     Indication: PRODUCT USED FOR UNKNOWN INDICATION
     Dosage: UNK
     Route: 048
  2. GABLOFEN [Suspect]
     Active Substance: BACLOFEN
     Dosage: 130 MICROGRAM, PER DAY
     Route: 037
  3. GABLOFEN [Suspect]
     Active Substance: BACLOFEN
     Dosage: 448 MICROGRAM PER DAY
     Route: 037
  4. GABLOFEN [Suspect]
     Active Substance: BACLOFEN
     Indication: PRODUCT USED FOR UNKNOWN INDICATION
     Dosage: 700 MICROGRAM PER DAY
     Route: 037
  5. GABLOFEN [Suspect]
     Active Substance: BACLOFEN
     Dosage: 230 MICROGRAM/DAY
     Route: 037
  6. BACLOFEN. [Concomitant]
     Active Substance: BACLOFEN
     Dosage: 100 MILLIGRAM
     Route: 048
  7. GABLOFEN [Suspect]
     Active Substance: BACLOFEN
     Dosage: 288 MCG/DAY
     Route: 037

REACTIONS (4)
  - Internal device exposed [Recovered/Resolved]
  - Implant site infection [Recovering/Resolving]
  - Wound [Recovered/Resolved]
  - Cellulitis [Recovering/Resolving]
